FAERS Safety Report 4886086-9 (Version None)
Quarter: 2006Q1

REPORT INFORMATION
  Report Type: 
  Country: None (occurrence: None)
  Receive Date: 20060117
  Receipt Date: 20060116
  Transmission Date: 20060701
  Serious: Yes (Hospitalization)
  Sender: FDA-Public Use
  Company Number: 200510235BFR

PATIENT
  Age: 41 Year
  Sex: Male

DRUGS (6)
  1. MOXIFLOXACIN HYDROCHLORIDE [Suspect]
     Indication: COUGH
     Dosage: 400 MG, TOTAL DAILY, ORAL
     Route: 048
     Dates: start: 20041230, end: 20041231
  2. MOXIFLOXACIN HYDROCHLORIDE [Suspect]
     Indication: PRODUCTIVE COUGH
     Dosage: 400 MG, TOTAL DAILY, ORAL
     Route: 048
     Dates: start: 20041230, end: 20041231
  3. MOXIFLOXACIN HYDROCHLORIDE [Suspect]
     Indication: PYREXIA
     Dosage: 400 MG, TOTAL DAILY, ORAL
     Route: 048
     Dates: start: 20041230, end: 20041231
  4. PEGASYS [Concomitant]
     Dosage: OW, SUBCUTANEOUS
     Route: 058
     Dates: start: 20041005, end: 20041231
  5. COMBIVIR [Concomitant]
  6. COPEGUS [Suspect]
     Dosage: ORAL
     Route: 048
     Dates: start: 20041005, end: 20041231

REACTIONS (7)
  - EPISTAXIS [None]
  - GINGIVAL BLEEDING [None]
  - HEPATOMEGALY [None]
  - PANCYTOPENIA [None]
  - PETECHIAE [None]
  - RED BLOOD CELLS URINE POSITIVE [None]
  - SERUM FERRITIN INCREASED [None]
